FAERS Safety Report 10567201 (Version 3)
Quarter: 2015Q4

REPORT INFORMATION
  Report Type: Spontaneous
  Country: JP (occurrence: JP)
  Receive Date: 20141105
  Receipt Date: 20151022
  Transmission Date: 20160304
  Serious: Yes (Hospitalization, Other)
  Sender: FDA-Public Use
  Company Number: JP-BRISTOL-MYERS SQUIBB COMPANY-21560883

PATIENT
  Age: 67 Year
  Sex: Male
  Weight: 59 kg

DRUGS (11)
  1. DECADRON [Concomitant]
     Active Substance: DEXAMETHASONE
     Indication: PREMEDICATION
     Dosage: 9.9 MG, QWK
     Route: 042
     Dates: start: 20140521
  2. GRANISETRON [Concomitant]
     Active Substance: GRANISETRON
     Indication: PREMEDICATION
     Dosage: 3 ML, QMO
     Route: 042
     Dates: start: 20140521, end: 20141007
  3. ERBITUX [Suspect]
     Active Substance: CETUXIMAB
     Indication: HYPOPHARYNGEAL CANCER
     Dosage: THEN 250 MG/M2-ONG
     Route: 041
     Dates: start: 20140521, end: 20140521
  4. BRIPLATIN [Suspect]
     Active Substance: CISPLATIN
     Indication: HYPOPHARYNGEAL CANCER
     Dosage: 80 MG/M2, QMO
     Route: 041
     Dates: start: 20140521, end: 20141007
  5. EMEND [Concomitant]
     Active Substance: APREPITANT
     Indication: PREMEDICATION
     Dosage: UNK, QMO
     Route: 048
     Dates: start: 20140521, end: 20141009
  6. MANNITOL. [Concomitant]
     Active Substance: MANNITOL
     Indication: PREMEDICATION
     Dosage: 300 ML, QWK
     Route: 041
     Dates: start: 20140521
  7. FLUORO URACIL [Suspect]
     Active Substance: FLUOROURACIL
     Indication: HYPOPHARYNGEAL CANCER
     Dosage: 700 MG/M2, QMO
     Route: 041
     Dates: start: 20140521, end: 20141007
  8. LACTEC [Concomitant]
     Active Substance: CALCIUM CHLORIDE ANHYDROUS\POTASSIUM CHLORIDE\SODIUM CHLORIDE\SODIUM LACTATE
     Indication: PREMEDICATION
     Dosage: 500 ML, QWK
     Route: 041
     Dates: start: 20140521
  9. ERBITUX [Suspect]
     Active Substance: CETUXIMAB
     Dosage: 250 MG, QWK
     Route: 041
  10. CHLOR-TRIMETON [Concomitant]
     Active Substance: CHLORPHENIRAMINE MALEATE
     Indication: PREMEDICATION
     Dosage: 10 ML, QWK
     Route: 042
     Dates: start: 20140521
  11. SOLDEM [Concomitant]
     Active Substance: DEXTROSE\POTASSIUM CHLORIDE\SODIUM CHLORIDE\SODIUM LACTATE
     Indication: PREMEDICATION
     Dosage: 500 ML, QWK
     Route: 041
     Dates: start: 20140521

REACTIONS (1)
  - Renal infarct [Recovering/Resolving]

NARRATIVE: CASE EVENT DATE: 20141013
